FAERS Safety Report 25109479 (Version 1)
Quarter: 2025Q1

REPORT INFORMATION
  Report Type: Spontaneous
  Country: CA (occurrence: CA)
  Receive Date: 20250323
  Receipt Date: 20250323
  Transmission Date: 20250408
  Serious: Yes (Hospitalization)
  Sender: DR REDDYS
  Company Number: CA-E2BLSMVVAL-SPO/CAN/24/0007136

PATIENT
  Age: 58 Year
  Sex: Female

DRUGS (1)
  1. ZOLEDRONIC ACID [Suspect]
     Active Substance: ZOLEDRONIC ACID
     Indication: Osteoporosis
     Dates: start: 20240509

REACTIONS (4)
  - Nausea [Unknown]
  - Headache [Unknown]
  - Feeling hot [Unknown]
  - Feeling cold [Unknown]
